FAERS Safety Report 21252030 (Version 1)
Quarter: 2022Q3

REPORT INFORMATION
  Report Type: Spontaneous
  Country: US (occurrence: US)
  Receive Date: 20220825
  Receipt Date: 20220825
  Transmission Date: 20221027
  Serious: No
  Sender: FDA-Public Use
  Company Number: US-BAUSCH-BL-2022-020758

PATIENT
  Age: 62 Year
  Sex: Female
  Weight: 119.7 kg

DRUGS (9)
  1. MESTINON [Suspect]
     Active Substance: PYRIDOSTIGMINE BROMIDE
     Indication: Myasthenia gravis
     Route: 065
     Dates: start: 2019
  2. MESTINON [Suspect]
     Active Substance: PYRIDOSTIGMINE BROMIDE
     Dosage: TWO-THREE DAILY VIA AN ORAL ROUTE
     Route: 048
     Dates: start: 20220211
  3. MESTINON [Suspect]
     Active Substance: PYRIDOSTIGMINE BROMIDE
     Dosage: 180 MG ONE TABLET AT BEDTIME (QHS) VIA AN ORAL ROUTE.
     Route: 048
     Dates: start: 20220211
  4. SOLIRIS [Suspect]
     Active Substance: ECULIZUMAB
     Indication: Myasthenia gravis
     Route: 065
     Dates: start: 20181025
  5. SOLIRIS [Suspect]
     Active Substance: ECULIZUMAB
     Route: 042
     Dates: start: 20210824
  6. OMEPRAZOLE [Concomitant]
     Active Substance: OMEPRAZOLE
     Indication: Product used for unknown indication
  7. SPIRONOLACTONE [Concomitant]
     Active Substance: SPIRONOLACTONE
     Indication: Product used for unknown indication
  8. VALTREX [Concomitant]
     Active Substance: VALACYCLOVIR HYDROCHLORIDE
     Indication: Product used for unknown indication
  9. PYRIDOSTIGMINE [Concomitant]
     Active Substance: PYRIDOSTIGMINE
     Indication: Product used for unknown indication

REACTIONS (2)
  - Feeling abnormal [Unknown]
  - Muscle contractions involuntary [Unknown]
